FAERS Safety Report 6978144-X (Version None)
Quarter: 2010Q3

REPORT INFORMATION
  Report Type: 
  Country: None (occurrence: None)
  Receive Date: 20100913
  Receipt Date: 20100609
  Transmission Date: 20110219
  Serious: Yes (Hospitalization)
  Sender: FDA-Public Use
  Company Number: US-BAYER-200941152NA

PATIENT
  Age: 24 Year
  Sex: Female
  Weight: 109 kg

DRUGS (7)
  1. YAZ [Suspect]
     Indication: CONTRACEPTION
     Route: 048
     Dates: start: 20070930, end: 20071203
  2. HYDROCODONE [Concomitant]
     Route: 065
  3. TOPAMAX [Concomitant]
     Route: 065
  4. TRAMADOL HCL [Concomitant]
     Route: 065
  5. IMITREX [Concomitant]
     Route: 065
  6. PENICILLIN [Concomitant]
     Route: 065
  7. LOVENOX [Concomitant]
     Indication: FEMALE STERILISATION
     Route: 065
     Dates: start: 20080701, end: 20080701

REACTIONS (6)
  - APHASIA [None]
  - DEEP VEIN THROMBOSIS [None]
  - HEADACHE [None]
  - INTRACRANIAL VENOUS SINUS THROMBOSIS [None]
  - VISION BLURRED [None]
  - VISUAL FIELD DEFECT [None]
